FAERS Safety Report 8762717 (Version 1)
Quarter: 2012Q4

REPORT INFORMATION
  Report Type: Report from Study
  Country: DE (occurrence: DE)
  Receive Date: 20120831
  Receipt Date: 20120831
  Transmission Date: 20130627
  Serious: Yes (Death, Life-Threatening, Other)
  Sender: FDA-Public Use
  Company Number: DE-ROCHE-1108616

PATIENT
  Age: 72 Year
  Sex: Male
  Weight: 94 kg

DRUGS (1)
  1. MIRCERA [Suspect]
     Indication: NEPHROGENIC ANAEMIA
     Dosage: DATE OF LAST DOSE PRIOR TO SAE 28/FEB/2011
     Route: 042
     Dates: start: 20101123

REACTIONS (2)
  - Cerebral disorder [Fatal]
  - Toxic encephalopathy [Unknown]
